FAERS Safety Report 5205921-8 (Version None)
Quarter: 2007Q1

REPORT INFORMATION
  Report Type: 
  Country: None (occurrence: None)
  Receive Date: 20070111
  Receipt Date: 20070108
  Transmission Date: 20070707
  Serious: Yes (Other)
  Sender: FDA-Public Use
  Company Number: AU-AMGEN-US202064

PATIENT
  Sex: Male

DRUGS (8)
  1. PANITUMUMAB [Suspect]
     Indication: COLORECTAL CANCER
     Route: 042
     Dates: start: 20060904
  2. IRINOTECAN HCL [Concomitant]
     Route: 042
  3. FLUOROURACIL [Concomitant]
     Route: 042
  4. FOLINIC ACID [Concomitant]
     Route: 042
  5. MONOPRIL [Concomitant]
     Route: 065
  6. OMEGA 3 [Concomitant]
     Route: 065
  7. RANITIDINE [Concomitant]
     Route: 065
  8. TEMAZEPAM [Concomitant]
     Route: 065

REACTIONS (1)
  - VENA CAVA THROMBOSIS [None]
